FAERS Safety Report 4970814-8 (Version None)
Quarter: 2006Q2

REPORT INFORMATION
  Report Type: 
  Country: None (occurrence: None)
  Receive Date: 20060412
  Receipt Date: 20060331
  Transmission Date: 20061013
  Serious: Yes (Hospitalization)
  Sender: FDA-Public Use
  Company Number: DE-ROCHE-442526

PATIENT
  Age: 64 Year
  Sex: Female

DRUGS (6)
  1. MYCOPHENOLATE MOFETIL [Suspect]
     Indication: IMMUNOSUPPRESSION
     Dosage: TAKEN TWICE.
     Route: 065
  2. STEROIDS NOS [Suspect]
     Indication: IMMUNOSUPPRESSION
     Dosage: THERAPY AT THE TIME POINT OF PV POSITIVE: 30 MG. THERAPY AFTER PV+: 7.5 MG.
     Route: 065
  3. CYA [Suspect]
     Indication: IMMUNOSUPPRESSION
     Dosage: THERAPY AT TIME OF BIOPSY: 180 NG/ML. THERAPY AFTER PV+ AND AT TIME OF BIOPSY: TOTAL OF 100 NG/ML.
     Route: 065
  4. SIMULECT [Suspect]
     Indication: IMMUNOSUPPRESSION
     Route: 065
  5. TACROLIMUS [Suspect]
     Dosage: THERAPY AT TIME OF BIOPSY: } 12 NG/ML. THERAPY AT TIME POINT OF PV POSITIVE.
     Route: 065
  6. AZA [Suspect]
     Indication: IMMUNOSUPPRESSION
     Dosage: THERAPY AFTER PV+.
     Route: 065

REACTIONS (2)
  - INFECTION [None]
  - KIDNEY TRANSPLANT REJECTION [None]
